FAERS Safety Report 6600802-7 (Version None)
Quarter: 2010Q1

REPORT INFORMATION
  Report Type: 
  Country: None (occurrence: None)
  Receive Date: 20100225
  Receipt Date: 20100211
  Transmission Date: 20100710
  Serious: Yes (Hospitalization)
  Sender: FDA-Public Use
  Company Number: IR-RANBAXY-2010RR-30912

PATIENT
  Age: 4 Year
  Sex: Female
  Weight: 12 kg

DRUGS (1)
  1. PHENOBARBITAL TAB [Suspect]
     Indication: CONVULSION
     Dosage: 15 MG, TID

REACTIONS (1)
  - ERYTHEMA MULTIFORME [None]
